FAERS Safety Report 4709274-0 (Version None)
Quarter: 2005Q3

REPORT INFORMATION
  Report Type: 
  Country: None (occurrence: None)
  Receive Date: 20050706
  Receipt Date: 20050622
  Transmission Date: 20060218
  Serious: Yes (Death, Other)
  Sender: FDA-Public Use
  Company Number: 800272

PATIENT
  Age: 63 Year
  Sex: Male
  Weight: 59 kg

DRUGS (6)
  1. EXTRANEAL [Suspect]
     Indication: PERITONEAL DIALYSIS
     Dosage: 2000 ML EVERY DAY IP
     Route: 032
     Dates: start: 20031015, end: 20041014
  2. PHENYTOIN [Suspect]
     Indication: EPILEPSY
     Dosage: 200 MG EVERY DAY PO
     Route: 048
     Dates: start: 20031006, end: 20041014
  3. DIANEAL [Concomitant]
  4. SIGMART [Concomitant]
  5. EXCEGRAN [Concomitant]
  6. ASPARA K [Concomitant]

REACTIONS (8)
  - CARDIO-RESPIRATORY ARREST [None]
  - DRY SKIN [None]
  - INSOMNIA [None]
  - LONG QT SYNDROME [None]
  - NASOPHARYNGITIS [None]
  - PHANTOM PAIN [None]
  - PRURITUS [None]
  - PYREXIA [None]
